FAERS Safety Report 7517729-9 (Version None)
Quarter: 2011Q2

REPORT INFORMATION
  Report Type: 
  Country: None (occurrence: None)
  Receive Date: 20110602
  Receipt Date: 20110519
  Transmission Date: 20111010
  Serious: No
  Sender: FDA-Public Use
  Company Number: US-BIOGENIDEC-2011BI018779

PATIENT
  Age: 63 Year
  Sex: Female

DRUGS (1)
  1. TYSABRI [Suspect]
     Indication: MULTIPLE SCLEROSIS
     Route: 042
     Dates: start: 20070706

REACTIONS (7)
  - LIVER FUNCTION TEST ABNORMAL [None]
  - FALL [None]
  - BLOOD POTASSIUM DECREASED [None]
  - DIABETES MELLITUS [None]
  - BLOOD SODIUM DECREASED [None]
  - ASTHENIA [None]
  - BLOOD GLUCOSE ABNORMAL [None]
